FAERS Safety Report 11321412 (Version 2)
Quarter: 2017Q3

REPORT INFORMATION
  Report Type: Report from Study
  Country: TW (occurrence: TW)
  Receive Date: 20150729
  Receipt Date: 20170829
  Transmission Date: 20171127
  Serious: Yes (Hospitalization)
  Sender: FDA-Public Use
  Company Number: TW-SA-2015SA109372

PATIENT
  Age: 70 Year
  Sex: Female

DRUGS (9)
  1. CONCOR [Concomitant]
     Active Substance: BISOPROLOL FUMARATE
     Indication: CORONARY ARTERY DISEASE
     Route: 065
  2. ALBUMIN TANNATE/BISMUTH SUBCARBONATE/KAOLIN/SCOPOLIA EXTRACT [Concomitant]
     Indication: IRRITABLE BOWEL SYNDROME
     Route: 065
  3. SPIRONOLACTONE. [Concomitant]
     Active Substance: SPIRONOLACTONE
     Indication: CARDIAC FAILURE CONGESTIVE
     Route: 065
  4. GLUCOMET [Concomitant]
     Indication: DIABETES MELLITUS
     Dosage: 5/500 MG
     Route: 065
  5. JANUVIA [Concomitant]
     Active Substance: SITAGLIPTIN PHOSPHATE
     Indication: DIABETES MELLITUS
     Route: 065
  6. CATILON [Concomitant]
     Indication: IRRITABLE BOWEL SYNDROME
     Route: 065
  7. ROSIS [Concomitant]
     Active Substance: FUROSEMIDE
     Indication: CARDIAC FAILURE CONGESTIVE
     Route: 065
  8. PLAVIX [Suspect]
     Active Substance: CLOPIDOGREL BISULFATE
     Indication: CORONARY ARTERY DISEASE
     Route: 048
     Dates: start: 20070531, end: 20150520
  9. CRESTOR [Concomitant]
     Active Substance: ROSUVASTATIN CALCIUM
     Indication: HYPERLIPIDAEMIA
     Route: 065

REACTIONS (16)
  - Abdominal pain lower [Unknown]
  - Aortic valve sclerosis [Unknown]
  - Left atrial dilatation [Unknown]
  - Post procedural complication [Unknown]
  - Left ventricular dilatation [Unknown]
  - Flatulence [Unknown]
  - Renal disorder [Unknown]
  - Ejection fraction decreased [Unknown]
  - Aortic valve incompetence [Unknown]
  - Hepatic steatosis [Unknown]
  - Gallbladder disorder [Unknown]
  - Troponin T increased [Unknown]
  - Left ventricular hypertrophy [Unknown]
  - Mitral valve calcification [Unknown]
  - Mitral valve incompetence [Unknown]
  - Diarrhoea [Unknown]

NARRATIVE: CASE EVENT DATE: 20150520
